FAERS Safety Report 16121286 (Version 1)
Quarter: 2019Q1

REPORT INFORMATION
  Report Type: Report from Study
  Country: IT (occurrence: IT)
  Receive Date: 20190327
  Receipt Date: 20190327
  Transmission Date: 20190418
  Serious: Yes (Hospitalization)
  Sender: FDA-Public Use
  Company Number: IT-ACCORD-115300

PATIENT
  Age: 28 Year
  Sex: Female

DRUGS (2)
  1. FLUNOX [Suspect]
     Active Substance: FLURAZEPAM HYDROCHLORIDE
     Dosage: 30 MG
     Route: 048
     Dates: start: 20180923, end: 20180923
  2. QUETIAPINE. [Suspect]
     Active Substance: QUETIAPINE
     Route: 048
     Dates: start: 20180923, end: 20180923

REACTIONS (3)
  - Drug abuse [Unknown]
  - Intentional self-injury [Recovering/Resolving]
  - Sopor [Recovering/Resolving]

NARRATIVE: CASE EVENT DATE: 20180923
